FAERS Safety Report 7431104-7 (Version None)
Quarter: 2011Q2

REPORT INFORMATION
  Report Type: 
  Country: None (occurrence: None)
  Receive Date: 20110421
  Receipt Date: 20110415
  Transmission Date: 20111010
  Serious: Yes (Other)
  Sender: FDA-Public Use
  Company Number: JP-B.I. PHARMACEUTICALS,INC./RIDGEFIELD-2011-BP-10389NB

PATIENT
  Age: 87 Year
  Sex: Female

DRUGS (12)
  1. LANIRAPID [Concomitant]
     Route: 065
  2. THYRADIN [Concomitant]
     Route: 065
  3. DISOPYRAMIDE PHOSPHATE [Concomitant]
     Route: 065
  4. AMLODIN [Concomitant]
     Route: 065
  5. ARTIST [Concomitant]
     Route: 065
  6. DEPAS [Concomitant]
     Route: 065
  7. MUCOSTA [Concomitant]
     Route: 065
  8. DOXAZOSIN MESYLATE [Concomitant]
     Route: 065
  9. PRAZAXA [Suspect]
     Dosage: 220 MG
     Route: 065
     Dates: start: 20110404
  10. FRANDOL S [Concomitant]
     Route: 065
  11. NATRIX [Concomitant]
     Route: 065
  12. MAGMITT [Concomitant]
     Route: 065

REACTIONS (1)
  - CEREBRAL INFARCTION [None]
